FAERS Safety Report 12180218 (Version 1)
Quarter: 2016Q1

REPORT INFORMATION
  Report Type: Spontaneous
  Country: US (occurrence: None)
  Receive Date: 20160314
  Receipt Date: 20160314
  Transmission Date: 20160526
  Serious: No
  Sender: FDA-Public Use
  Company Number: None

PATIENT
  Age: 58 Year
  Sex: Female

DRUGS (4)
  1. HARVONI [Suspect]
     Active Substance: LEDIPASVIR\SOFOSBUVIR
     Indication: OVARIAN CANCER
     Dosage: 90-400MG QD ORAL
     Route: 048
     Dates: start: 20160224
  2. METAMUCIL [Concomitant]
     Active Substance: PLANTAGO SEED
  3. CLOBETASOL [Concomitant]
     Active Substance: CLOBETASOL
  4. SUPREP BOWEL [Concomitant]

REACTIONS (2)
  - Insomnia [None]
  - Headache [None]

NARRATIVE: CASE EVENT DATE: 20160229
